FAERS Safety Report 18740774 (Version 1)
Quarter: 2021Q1

REPORT INFORMATION
  Report Type: Report from Study
  Country: None (occurrence: IT)
  Receive Date: 20210114
  Receipt Date: 20210114
  Transmission Date: 20210419
  Serious: Yes (Hospitalization)
  Sender: FDA-Public Use
  Company Number: IT-ABBVIE-21K-083-3729077-00

PATIENT
  Age: 61 Year
  Sex: Male

DRUGS (2)
  1. DUODOPA [Suspect]
     Active Substance: CARBIDOPA\LEVODOPA
  2. DUODOPA [Suspect]
     Active Substance: CARBIDOPA\LEVODOPA
     Indication: PARKINSON^S DISEASE
     Dosage: TOTAL DAILY DOSE (MG): 377; PUMP SETTING: MD: 2+3; CR: 1,1 (13H); ED: 1.
     Route: 050
     Dates: start: 20180725

REACTIONS (3)
  - Condition aggravated [Unknown]
  - Pneumonia [Unknown]
  - Pulmonary oil microembolism [Unknown]

NARRATIVE: CASE EVENT DATE: 202002
